FAERS Safety Report 9445731 (Version 2)
Quarter: 2013Q4

REPORT INFORMATION
  Report Type: Report from Study
  Country: DE (occurrence: DE)
  Receive Date: 20130807
  Receipt Date: 20131113
  Transmission Date: 20140711
  Serious: Yes (Hospitalization)
  Sender: FDA-Public Use
  Company Number: DE-BRISTOL-MYERS SQUIBB COMPANY-19166792

PATIENT
  Age: 77 Year
  Sex: Male

DRUGS (8)
  1. ABATACEPT [Suspect]
     Indication: RHEUMATOID ARTHRITIS
     Dates: start: 200905, end: 200909
  2. TOCILIZUMAB [Suspect]
     Indication: RHEUMATOID ARTHRITIS
     Dates: start: 200911
  3. PREDNISOLONE [Concomitant]
     Dates: start: 200607
  4. XIPAMIDE [Concomitant]
     Dates: start: 201004
  5. ALLOPURINOL [Concomitant]
     Dosage: 1DF=150-UNITS NOS
     Dates: start: 201201
  6. TILIDINE [Concomitant]
     Dates: start: 201003
  7. OPIPRAMOL [Concomitant]
     Dates: start: 201206
  8. TAMSULOSIN [Concomitant]
     Dates: start: 201010

REACTIONS (1)
  - Basal cell carcinoma [Recovered/Resolved]
